FAERS Safety Report 10254611 (Version 1)
Quarter: 2014Q2

REPORT INFORMATION
  Report Type: Spontaneous
  Country: DE (occurrence: DE)
  Receive Date: 20140624
  Receipt Date: 20140624
  Transmission Date: 20141212
  Serious: Yes (Hospitalization)
  Sender: FDA-Public Use
  Company Number: DE-DRREDDYS-GER/GER/14/0041224

PATIENT
  Age: 51 Year
  Sex: Female
  Weight: 76 kg

DRUGS (5)
  1. AMLODIPINE [Suspect]
     Indication: PRODUCT USED FOR UNKNOWN INDICATION
     Route: 048
     Dates: end: 201405
  2. TWINRIX [Suspect]
     Indication: IMMUNISATION
     Route: 030
     Dates: start: 20131203
  3. TWINRIX [Suspect]
     Route: 030
     Dates: start: 20140122
  4. LEVOTHYROXINE SODIUM [Concomitant]
     Indication: GOITRE
     Route: 048
  5. ATENOLOL [Concomitant]
     Indication: HYPERTENSION
     Route: 048

REACTIONS (3)
  - Dermatitis [Not Recovered/Not Resolved]
  - Vasculitis [Not Recovered/Not Resolved]
  - Pruritus [Unknown]
